FAERS Safety Report 25822441 (Version 1)
Quarter: 2025Q3

REPORT INFORMATION
  Report Type: Spontaneous
  Country: CH (occurrence: CH)
  Receive Date: 20250919
  Receipt Date: 20250919
  Transmission Date: 20251021
  Serious: Yes (Other)
  Sender: ROCHE
  Company Number: CH-ROCHE-10000387890

PATIENT

DRUGS (1)
  1. AVASTIN [Suspect]
     Active Substance: BEVACIZUMAB
     Indication: Glioma
     Route: 065
     Dates: start: 20250328

REACTIONS (2)
  - Off label use [Unknown]
  - Neoplasm progression [Unknown]
